FAERS Safety Report 19809260 (Version 3)
Quarter: 2021Q3

REPORT INFORMATION
  Report Type: Spontaneous
  Country: US (occurrence: US)
  Receive Date: 20210909
  Receipt Date: 20210924
  Transmission Date: 20211014
  Serious: Yes (Other)
  Sender: FDA-Public Use
  Company Number: US-AUROBINDO-AUR-APL-2021-037057

PATIENT
  Age: 54 Year
  Sex: Female
  Weight: 98 kg

DRUGS (2)
  1. TRIMETHOPRIM+SULFAMETHOXAZOLE TABLET [Suspect]
     Active Substance: SULFAMETHOXAZOLE\TRIMETHOPRIM
     Indication: ABSCESS
     Dosage: 1 DOSAGE FORM, TWO TIMES A DAY
     Route: 048
     Dates: start: 20210819, end: 20210823
  2. EUFLEXXA [Concomitant]
     Active Substance: HYALURONATE SODIUM
     Indication: PRODUCT USED FOR UNKNOWN INDICATION
     Dosage: SHOT EVERY 7 MONTHS
     Route: 065

REACTIONS (8)
  - Dizziness [Recovered/Resolved]
  - Chest pain [Recovered/Resolved]
  - Abdominal pain [Recovered/Resolved]
  - Heart rate increased [Recovered/Resolved]
  - Peripheral coldness [Recovered/Resolved]
  - Pyrexia [Recovered/Resolved]
  - Burning sensation [Recovered/Resolved]
  - Cold sweat [Recovered/Resolved]

NARRATIVE: CASE EVENT DATE: 20210823
